FAERS Safety Report 17228806 (Version 1)
Quarter: 2020Q1

REPORT INFORMATION
  Report Type: Spontaneous
  Country: IN (occurrence: IN)
  Receive Date: 20200103
  Receipt Date: 20200103
  Transmission Date: 20200409
  Serious: Yes (Other)
  Sender: FDA-Public Use
  Company Number: IN-PFIZER INC-2018292364

PATIENT
  Age: 33 Year
  Sex: Male

DRUGS (1)
  1. CRIZALK [Suspect]
     Active Substance: CRIZOTINIB
     Indication: NON-SMALL CELL LUNG CANCER METASTATIC
     Dosage: 250 MG, 2X/DAY
     Route: 048
     Dates: start: 20180705

REACTIONS (6)
  - Pain [Unknown]
  - Abdominal discomfort [Unknown]
  - Rectal haemorrhage [Unknown]
  - Pyrexia [Unknown]
  - Peripheral swelling [Unknown]
  - Neoplasm progression [Unknown]
